FAERS Safety Report 7684170-8 (Version None)
Quarter: 2011Q3

REPORT INFORMATION
  Report Type: 
  Country: None (occurrence: None)
  Receive Date: 20110815
  Receipt Date: 20110808
  Transmission Date: 20111222
  Serious: Yes (Other)
  Sender: FDA-Public Use
  Company Number: US-CEPHALON-US018101

PATIENT
  Sex: Male
  Weight: 30 kg

DRUGS (7)
  1. PROVIGIL [Suspect]
     Dosage: 50MG QAM PRN
     Route: 048
     Dates: start: 20060725
  2. CELEXA [Concomitant]
     Indication: CATAPLEXY
     Route: 048
     Dates: start: 20050101
  3. DEXEDRINE [Concomitant]
     Route: 065
  4. PROVIGIL [Suspect]
     Indication: NARCOLEPSY
     Route: 048
     Dates: start: 20050922, end: 20051101
  5. PROVIGIL [Suspect]
     Route: 048
     Dates: start: 20060101, end: 20060724
  6. RITALIN [Concomitant]
     Route: 065
  7. PROVIGIL [Suspect]
     Route: 048
     Dates: start: 20060301, end: 20060301

REACTIONS (3)
  - AGGRESSION [None]
  - AGITATION [None]
  - IMPULSIVE BEHAVIOUR [None]
